FAERS Safety Report 18282114 (Version 1)
Quarter: 2020Q3

REPORT INFORMATION
  Report Type: Report from Study
  Country: US (occurrence: US)
  Receive Date: 20200918
  Receipt Date: 20200918
  Transmission Date: 20201103
  Serious: Yes (Other)
  Sender: FDA-Public Use
  Company Number: US-TEVA-2020-US-1828869

PATIENT
  Sex: Female

DRUGS (3)
  1. AJOVY [Suspect]
     Active Substance: FREMANEZUMAB-VFRM
     Dosage: WENT OFF FOR 2 OR 3 MONTHS BECAUSE IT LOWERS HER IMMUNE SYSTEM AND SHE WAS SICK
     Route: 065
     Dates: start: 202002
  2. AJOVY [Suspect]
     Active Substance: FREMANEZUMAB-VFRM
     Dosage: RESUMED IN APRIL/MAY 2020
     Route: 065
  3. AJOVY [Suspect]
     Active Substance: FREMANEZUMAB-VFRM
     Indication: HEMIPLEGIC MIGRAINE
     Dosage: AUTOINJECTOR
     Route: 065

REACTIONS (10)
  - Immunodeficiency [Unknown]
  - Eating disorder [Unknown]
  - Impaired work ability [Unknown]
  - Emotional disorder [Unknown]
  - COVID-19 [Recovering/Resolving]
  - Anxiety [Unknown]
  - Gait disturbance [Unknown]
  - Dyspepsia [Unknown]
  - Malaise [Unknown]
  - Social problem [Unknown]

NARRATIVE: CASE EVENT DATE: 2020
